FAERS Safety Report 8243181-4 (Version None)
Quarter: 2012Q1

REPORT INFORMATION
  Report Type: 
  Country: None (occurrence: None)
  Receive Date: 20120329
  Receipt Date: 20120321
  Transmission Date: 20120608
  Serious: Yes (Hospitalization, Other)
  Sender: FDA-Public Use
  Company Number: US-JNJFOC-20120213583

PATIENT
  Sex: Male
  Weight: 78.47 kg

DRUGS (5)
  1. XARELTO [Suspect]
     Indication: ATRIAL FIBRILLATION
     Route: 048
     Dates: start: 20120209, end: 20120226
  2. NITROGLYCERIN [Concomitant]
  3. XARELTO [Suspect]
     Indication: CEREBROVASCULAR ACCIDENT PROPHYLAXIS
     Route: 048
     Dates: start: 20120209, end: 20120226
  4. ASPIRIN [Concomitant]
     Route: 048
     Dates: end: 20120101
  5. PLAVIX [Concomitant]
     Dates: end: 20120101

REACTIONS (6)
  - MYOCARDIAL INFARCTION [None]
  - HAEMOGLOBIN DECREASED [None]
  - ANGINA UNSTABLE [None]
  - TUMOUR HAEMORRHAGE [None]
  - OESOPHAGEAL ADENOCARCINOMA [None]
  - ANAEMIA OF MALIGNANT DISEASE [None]
